FAERS Safety Report 9307536 (Version 1)
Quarter: 2013Q2

REPORT INFORMATION
  Report Type: Spontaneous
  Country: CA (occurrence: CA)
  Receive Date: 20130524
  Receipt Date: 20130524
  Transmission Date: 20140414
  Serious: Yes (Hospitalization)
  Sender: FDA-Public Use
  Company Number: CA-NOVOPROD-378290

PATIENT
  Sex: Male

DRUGS (2)
  1. NOVORAPID PENFILL [Suspect]
     Indication: DIABETES MELLITUS
     Route: 065
  2. LEVEMIR PENFILL [Suspect]
     Indication: DIABETES MELLITUS
     Route: 065

REACTIONS (2)
  - Haematemesis [Recovered/Resolved]
  - Weight decreased [Unknown]
